FAERS Safety Report 9356795 (Version 2)
Quarter: 2013Q3

REPORT INFORMATION
  Report Type: Spontaneous
  Country: CA (occurrence: CA)
  Receive Date: 20130619
  Receipt Date: 20130705
  Transmission Date: 20140515
  Serious: Yes (Hospitalization, Other)
  Sender: FDA-Public Use
  Company Number: CA-NAPPMUNDI-CAN-2013-0003946

PATIENT
  Sex: Male
  Weight: 145 kg

DRUGS (193)
  1. OXYNEO [Suspect]
     Indication: PANCREATITIS CHRONIC
     Dosage: 700 MG, DAILY
     Dates: start: 2012
  2. OXYNEO [Suspect]
     Indication: ABDOMINAL PAIN
     Dosage: UNK, TID
  3. OXYNEO [Suspect]
     Indication: BACK PAIN
     Dosage: 120 MG, QID
  4. OXYNEO [Suspect]
     Dosage: 160 MG, Q8H
     Route: 048
  5. OXYCONTIN TABLETS [Suspect]
     Indication: PANCREATITIS CHRONIC
     Dosage: UNK
     Dates: start: 1998, end: 2012
  6. OXYCONTIN TABLETS [Suspect]
     Indication: ABDOMINAL PAIN
     Dosage: 700 MG, DAILY
     Dates: end: 2012
  7. OXYCONTIN TABLETS [Suspect]
     Indication: BACK PAIN
     Dosage: 160 MG, QID
  8. OXYCONTIN TABLETS [Suspect]
     Dosage: 160 MG, Q8H
  9. OXYCONTIN TABLETS [Suspect]
     Dosage: 140 MG, QID
  10. OXYCONTIN TABLETS [Suspect]
     Dosage: 140 MG, Q8H
  11. OXYCONTIN TABLETS [Suspect]
     Dosage: 120 MG, TID
  12. OXYCONTIN TABLETS [Suspect]
     Dosage: 110 MG, Q8H
  13. OXYCONTIN TABLETS [Suspect]
     Dosage: 100 MG, Q8H
  14. OXYCONTIN TABLETS [Suspect]
     Dosage: 90 MG, BID
     Dates: start: 20030609
  15. OXYCONTIN TABLETS [Suspect]
     Dosage: 80 MG, TID
  16. OXYCONTIN TABLETS [Suspect]
     Dosage: 80 MG, BID
  17. OXYCONTIN TABLETS [Suspect]
     Dosage: 80 MG, UNK
     Dates: start: 20080114, end: 20110223
  18. OXYCONTIN TABLETS [Suspect]
     Dosage: 60 MG, TID
  19. OXYCONTIN TABLETS [Suspect]
     Dosage: 60 MG, BID
     Dates: start: 1998
  20. OXYCONTIN TABLETS [Suspect]
     Dosage: 60 MG, UNK
     Dates: start: 20100302, end: 20100624
  21. OXYCONTIN TABLETS [Suspect]
     Dosage: 40 MG, TID
     Dates: start: 200708
  22. OXYCONTIN TABLETS [Suspect]
     Dosage: 40 MG, BID
  23. OXYCONTIN TABLETS [Suspect]
     Dosage: 40 MG, DAILY
  24. OXYCONTIN TABLETS [Suspect]
     Dosage: 40 MG, UNK
     Dates: start: 20070815, end: 20110303
  25. OXYCONTIN TABLETS [Suspect]
     Dosage: 30 MG, TID
  26. OXYCONTIN TABLETS [Suspect]
     Dosage: 30 MG, BID
  27. OXYCONTIN TABLETS [Suspect]
     Dosage: 20 MG, QID
  28. OXYCONTIN TABLETS [Suspect]
     Dosage: 20 MG, TID
  29. OXYCONTIN TABLETS [Suspect]
     Dosage: 20 MG, DAILY
  30. OXYCONTIN TABLETS [Suspect]
     Dosage: 20 MG, UNK
     Dates: start: 20070414, end: 20100921
  31. OXYCONTIN TABLETS [Suspect]
     Dosage: 10 MG, UNK
     Dates: start: 20071031, end: 20071129
  32. OXYIR [Suspect]
     Indication: BREAKTHROUGH PAIN
     Dosage: 20 MG, QID PRN
     Route: 048
  33. OXYIR [Suspect]
     Dosage: 20 MG, Q8H
  34. OXYIR [Suspect]
     Dosage: 20 MG, UNK
     Dates: start: 20091125, end: 20091208
  35. OXYIR [Suspect]
     Dosage: 15 MG, Q6H
  36. OXYIR [Suspect]
     Dosage: 10 MG, Q6- 8H
  37. OXYIR [Suspect]
     Dosage: 10 MG, TID
  38. OXYIR [Suspect]
     Dosage: 10 MG, BID
  39. OXYIR [Suspect]
     Dosage: 10 MG, UNK
     Dates: start: 20070414, end: 20080213
  40. OXYIR [Suspect]
     Dosage: 5 MG, DAILY
  41. OXYIR [Suspect]
     Dosage: 5 MG, TID
  42. MS CONTIN TABLETS [Suspect]
     Indication: PAIN
     Dosage: 80 MG, TID
  43. MS IR TABLETS [Suspect]
     Indication: PAIN
     Dosage: 10 MG, UNK
  44. MORPHINE SULFATE [Suspect]
     Indication: PAIN
     Dosage: 5 MG, PRN
  45. HYDROMORPH CONTIN [Suspect]
     Indication: PAIN
     Dosage: 36 MG, Q8H
  46. HYDROMORPH CONTIN [Suspect]
     Dosage: 18 MG, UNK
     Dates: start: 20100317, end: 20101112
  47. HYDROMORPH CONTIN [Suspect]
     Dosage: 12 MG, TID
  48. HYDROMORPH CONTIN [Suspect]
     Dosage: 12 MG, UNK
     Dates: start: 20070724, end: 20070802
  49. HYDROMORPH CONTIN [Suspect]
     Dosage: 6 MG, UNK
     Dates: start: 20100918, end: 20101017
  50. HYDROMORPH CONTIN [Suspect]
     Dosage: 2 UNK, Q8H
  51. DILAUDID [Suspect]
     Indication: PAIN
     Dosage: 12 MG, TID
  52. HYDROMORPHONE HCL [Suspect]
     Indication: PAIN
     Dosage: 20 MG, UNK
  53. HYDROMORPHONE HCL [Suspect]
     Dosage: 16 MG, Q6H
  54. PMS-HYDROMORPHONE [Suspect]
     Indication: PAIN
     Dosage: 8 MG, UNK
     Dates: start: 20100317, end: 20101029
  55. PMS-HYDROMORPHONE [Suspect]
     Dosage: 4 MG, UNK
     Dates: start: 20090904, end: 20091216
  56. PMS-HYDROMORPHONE [Suspect]
     Dosage: 12 MG, QID
  57. PMS-OXYCODONE [Suspect]
     Indication: PAIN
     Dosage: 20 MG, Q4H PRN
  58. PMS-OXYCODONE [Suspect]
     Dosage: 20 MG, UNK
     Dates: start: 20100122, end: 20101015
  59. PMS-OXYCODONE [Suspect]
     Dosage: 10 MG, UNK
     Dates: start: 20100102, end: 20100210
  60. SUPEUDOL [Suspect]
     Indication: PAIN
     Dosage: 20 MG, QID
  61. SUPEUDOL [Suspect]
     Dosage: 20 MG, UNK
     Dates: start: 20101025, end: 20101123
  62. SUPEUDOL [Suspect]
     Dosage: 10 MG, UNK
     Dates: start: 20100515, end: 20110303
  63. SUPEUDOL [Suspect]
     Dosage: 10 MG, Q6H
  64. RATIO-OXYCOCET [Suspect]
     Indication: PAIN
     Dosage: UNK
     Dates: start: 20100423, end: 20100522
  65. OXYCODONE/APAP /01601701/ [Suspect]
     Indication: PAIN
     Dosage: UNK
     Dates: start: 20100405, end: 20100504
  66. DURAGESIC /00174601/ [Suspect]
     Indication: PAIN
     Dosage: 100 MCG, Q1H
  67. DURAGESIC /00174601/ [Suspect]
     Dosage: 125 MCG, Q1H
  68. RATIO-FENTANYL [Suspect]
     Indication: PAIN
     Dosage: 100 MCG, Q1H
     Dates: start: 20110119, end: 20110124
  69. RATIO-FENTANYL [Suspect]
     Dosage: 25 MCG, Q1H
     Dates: start: 20110119, end: 20110124
  70. FENTANYL SANDOZ MAT [Suspect]
     Indication: PAIN
     Dosage: 100 MCG, Q1H
     Dates: start: 20100918, end: 20101017
  71. DEMEROL [Suspect]
     Indication: PAIN
     Dosage: 100 MG, PRN
  72. DEMEROL [Suspect]
     Dosage: 100 MG, HS
     Route: 030
  73. OPIOIDS [Suspect]
     Indication: PAIN
     Dosage: UNK
     Dates: start: 1992
  74. DOM-GABAPENTIN [Concomitant]
     Indication: PRODUCT USED FOR UNKNOWN INDICATION
     Dosage: 300 MG, UNK
     Dates: start: 20100918, end: 20101112
  75. LEVEMIR [Concomitant]
     Indication: PRODUCT USED FOR UNKNOWN INDICATION
     Dosage: 100 U/ML, UNK
     Dates: start: 20090916, end: 20110319
  76. LEVEMIR [Concomitant]
     Dosage: 80 UNIT, HS
     Route: 058
  77. LEVEMIR [Concomitant]
     Dosage: 70 UNIT, HS
  78. LEVEMIR [Concomitant]
     Dosage: 75 UNIT, HS
  79. LEVEMIR [Concomitant]
     Dosage: 20 UNIT, HS
  80. NOVORAPID [Concomitant]
     Indication: PRODUCT USED FOR UNKNOWN INDICATION
     Dosage: 100 U/ML, UNK
     Dates: start: 20070419, end: 20110319
  81. NOVORAPID [Concomitant]
     Dosage: 20 UNIT, TID
     Route: 058
  82. NOVORAPID [Concomitant]
     Dosage: 30 UNIT, TID
  83. NOVORAPID [Concomitant]
     Dosage: 20 UNIT, AM
     Route: 058
  84. NOVORAPID [Concomitant]
     Dosage: 30 UNIT, BID
     Route: 058
  85. NOVORAPID [Concomitant]
     Dosage: 35 UNIT, TID
     Route: 058
  86. NOVORAPID [Concomitant]
     Dosage: 40 UNIT, TID
  87. ONE TOUCH [Concomitant]
     Indication: PRODUCT USED FOR UNKNOWN INDICATION
     Dosage: UNK
     Dates: start: 20071207, end: 20080125
  88. HUMULIN R [Concomitant]
     Indication: PRODUCT USED FOR UNKNOWN INDICATION
     Dosage: 30 UNIT, AM
  89. HUMULIN R [Concomitant]
     Dosage: 40 UNIT, PM
  90. HUMULIN R [Concomitant]
     Dosage: 25 UNIT, TID
  91. HUMULIN N [Concomitant]
     Indication: PRODUCT USED FOR UNKNOWN INDICATION
     Dosage: 100 U/ML, UNK
     Dates: start: 20070630, end: 20080212
  92. HUMULIN N [Concomitant]
     Dosage: 60 UNIT, HS
  93. HUMULIN N [Concomitant]
     Dosage: 30 UNIT, AM
  94. HUMULIN N [Concomitant]
     Dosage: 65 UNIT, HS
  95. INSULIN, REGULAR [Concomitant]
     Indication: PRODUCT USED FOR UNKNOWN INDICATION
     Dosage: 30 UNIT, AM
  96. INSULIN, REGULAR [Concomitant]
     Dosage: 40 UNIT, HS
  97. PANTOLOC                           /01263204/ [Concomitant]
     Indication: PRODUCT USED FOR UNKNOWN INDICATION
     Dosage: 40 MG, UNK
     Dates: start: 20060718, end: 20071009
  98. PANTOLOC                           /01263204/ [Concomitant]
     Dosage: 40 MG, DAILY
  99. HUMALOG [Concomitant]
     Indication: PRODUCT USED FOR UNKNOWN INDICATION
     Dosage: 30-35 UNIT, TID
  100. VICTOZA [Concomitant]
     Indication: PRODUCT USED FOR UNKNOWN INDICATION
     Dosage: 1.8 MG, DAILY
     Route: 058
  101. METFORMIN [Concomitant]
     Indication: PRODUCT USED FOR UNKNOWN INDICATION
     Dosage: 500 MG, TID
  102. METFORMIN [Concomitant]
     Dosage: 1000 MG, BID
     Route: 048
  103. INSULIN N [Concomitant]
     Indication: PRODUCT USED FOR UNKNOWN INDICATION
     Dosage: 30 UNIT, AM
  104. INSULIN N [Concomitant]
     Dosage: 40 UNIT, PM
  105. INSULIN N [Concomitant]
     Dosage: 60 UNIT, HS
  106. SLOW-K [Concomitant]
     Indication: PRODUCT USED FOR UNKNOWN INDICATION
     Dosage: 600 MG, UNK
     Dates: start: 20100824, end: 20101116
  107. SLOW-K [Concomitant]
     Dosage: UNK, PRN
  108. POTASSIUM CHLORIDE [Concomitant]
     Indication: PRODUCT USED FOR UNKNOWN INDICATION
     Dosage: 80 MG, DAILY
  109. ZAROXOLYN [Concomitant]
     Indication: PRODUCT USED FOR UNKNOWN INDICATION
     Dosage: 2.5 MG, UNK
     Dates: start: 20070910, end: 20110209
  110. ZAROXOLYN [Concomitant]
     Dosage: 5 MG, DAILY
  111. ZAROXOLYN [Concomitant]
     Dosage: 2.5 MG, BID
     Route: 048
  112. ZAROXOLYN [Concomitant]
     Dosage: 5 MG, BID
  113. NOVO-SPIROTON [Concomitant]
     Indication: PRODUCT USED FOR UNKNOWN INDICATION
     Dosage: 25 MG, UNK
     Dates: start: 20101018, end: 20110209
  114. NOVO-SPIROTON [Concomitant]
     Dosage: 50 MG, BID
  115. ALDACTONE                          /00006201/ [Concomitant]
     Indication: PRODUCT USED FOR UNKNOWN INDICATION
     Dosage: 25 MG, UNK
     Dates: start: 20091114, end: 20101015
  116. ALDACTONE                          /00006201/ [Concomitant]
     Dosage: 50 MG, BID
     Route: 048
  117. FUROSEMIDE [Concomitant]
     Indication: PRODUCT USED FOR UNKNOWN INDICATION
     Dosage: 40 MG, BID
     Route: 048
  118. NU-FUROSEMIDE [Concomitant]
     Indication: PRODUCT USED FOR UNKNOWN INDICATION
     Dosage: 40 MG, UNK
     Dates: start: 20091114, end: 20101201
  119. APO-CLINDAMYCIN [Concomitant]
     Indication: PRODUCT USED FOR UNKNOWN INDICATION
     Dosage: 300 MG, UNK
     Dates: start: 20100925, end: 20101004
  120. METRONIDAZOLE [Concomitant]
     Indication: PRODUCT USED FOR UNKNOWN INDICATION
     Dosage: 500 MG, UNK
     Dates: start: 20100925, end: 20101004
  121. METRONIDAZOLE [Concomitant]
     Dosage: 250 MG, UNK
     Dates: start: 20110218, end: 20110227
  122. METRONIDAZOLE [Concomitant]
     Dosage: 500 MG, TID
  123. METRONIDAZOLE [Concomitant]
     Dosage: 250 MG, SEE TEXT
  124. NORTRIPTYLINE [Concomitant]
     Indication: PRODUCT USED FOR UNKNOWN INDICATION
     Dosage: 25 MG, UNK
     Dates: start: 20100918, end: 20101017
  125. RAMIPRIL [Concomitant]
     Indication: PRODUCT USED FOR UNKNOWN INDICATION
     Dosage: 10 MG, UNK
     Dates: start: 20101018, end: 20101116
  126. RAMIPRIL [Concomitant]
     Dosage: 5 MG, UNK
     Dates: start: 20101102, end: 20101205
  127. RAMIPRIL [Concomitant]
     Dosage: 6 MG, DAILY
  128. RAMIPRIL [Concomitant]
     Dosage: 5 MG, DAILY
  129. ALTACE [Concomitant]
     Indication: PRODUCT USED FOR UNKNOWN INDICATION
     Dosage: 10 MG, UNK
     Dates: start: 20101004, end: 20101107
  130. ALTACE [Concomitant]
     Dosage: 2.5 MG, DAILY
  131. ALTACE [Concomitant]
     Dosage: 10 MG, DAILY
  132. ALTACE [Concomitant]
     Dosage: 5 MG, DAILY
     Route: 048
  133. APO-RAMIPRIL [Concomitant]
     Indication: PRODUCT USED FOR UNKNOWN INDICATION
     Dosage: 10 MG, UNK
     Dates: start: 20101004, end: 20101107
  134. APO-RAMIPRIL [Concomitant]
     Dosage: 5 MG, UNK
     Dates: start: 20091114, end: 20100210
  135. APO-RAMIPRIL [Concomitant]
     Dosage: 5 MG, DAILY
  136. RAN-RAMIPRIL [Concomitant]
     Indication: PRODUCT USED FOR UNKNOWN INDICATION
     Dosage: 5 MG, DAILY
  137. BENADRYL                           /00000402/ [Concomitant]
     Indication: PRODUCT USED FOR UNKNOWN INDICATION
     Dosage: 25 MG, UNK
     Dates: start: 20100824, end: 20100912
  138. PMS-CIPROFLOXACIN [Concomitant]
     Indication: PRODUCT USED FOR UNKNOWN INDICATION
     Dosage: 500 MG, UNK
     Dates: start: 20100823, end: 20100827
  139. PMS-CIPROFLOXACIN [Concomitant]
     Dosage: 500 MG, BID
  140. NU-COTRIMOX DS [Concomitant]
     Indication: PRODUCT USED FOR UNKNOWN INDICATION
     Dosage: UNK
     Dates: start: 20100805, end: 20100814
  141. CHAMPIX [Concomitant]
     Indication: PRODUCT USED FOR UNKNOWN INDICATION
     Dosage: UNK
     Dates: start: 20110218, end: 20110303
  142. CRESTOR [Concomitant]
     Indication: PRODUCT USED FOR UNKNOWN INDICATION
     Dosage: 40 MG, UNK
     Dates: start: 20100324, end: 20101205
  143. CRESTOR [Concomitant]
     Dosage: 20 MG, DAILY
  144. CRESTOR [Concomitant]
     Dosage: 10 MG, DAILY
     Route: 048
  145. CRESTOR [Concomitant]
     Dosage: 40 MG, HS
  146. ELAVIL                             /00002202/ [Concomitant]
     Indication: PRODUCT USED FOR UNKNOWN INDICATION
     Dosage: 50 MG, UNK
     Dates: start: 20100405, end: 20100504
  147. DIPROSALIC [Concomitant]
     Indication: PRODUCT USED FOR UNKNOWN INDICATION
     Dosage: UNK UNK, BID
     Dates: start: 20100324, end: 20100422
  148. DIPROSALIC [Concomitant]
     Dosage: UNK
  149. DIAZEPAM [Concomitant]
     Indication: ANXIETY
     Dosage: 10 MG, PRN
     Route: 048
  150. PMS-LORAZEPAM [Concomitant]
     Indication: PRODUCT USED FOR UNKNOWN INDICATION
     Dosage: 1 MG, UNK
     Dates: start: 20071231, end: 20080109
  151. LORAZEPAM [Concomitant]
     Indication: INSOMNIA
     Dosage: 1 MG, TID PRN
  152. LORAZEPAM [Concomitant]
     Dosage: 0.5 MG, TID PRN
  153. ATIVAN [Concomitant]
     Indication: PRODUCT USED FOR UNKNOWN INDICATION
     Dosage: 1 MG, TID PRN
     Route: 060
  154. NOVO-CLINDAMYCIN [Concomitant]
     Indication: PRODUCT USED FOR UNKNOWN INDICATION
     Dosage: 300 MG, UNK
     Dates: start: 20071218, end: 2009
  155. LOVENOX [Concomitant]
     Indication: PRODUCT USED FOR UNKNOWN INDICATION
     Dosage: 100 MG/ML, UNK
     Dates: start: 20070726, end: 20070824
  156. LOVENOX [Concomitant]
     Dosage: 100 MG, Q12H
     Route: 058
  157. GEN-WARFARIN [Concomitant]
     Indication: PRODUCT USED FOR UNKNOWN INDICATION
     Dosage: 5 MG, UNK
     Dates: start: 20070723, end: 20070801
  158. NIACIN [Concomitant]
     Indication: PRODUCT USED FOR UNKNOWN INDICATION
     Dosage: 250 MG, HS
  159. NIACIN [Concomitant]
     Dosage: 250 MG, BID
     Route: 048
  160. LIPIDIL [Concomitant]
     Indication: PRODUCT USED FOR UNKNOWN INDICATION
     Dosage: 250 MG, DAILY
  161. LIPIDIL [Concomitant]
     Dosage: 200 MG, HS
     Route: 048
  162. EZETROL [Concomitant]
     Indication: PRODUCT USED FOR UNKNOWN INDICATION
     Dosage: 10 MG, DAILY
  163. LIPITOR [Concomitant]
     Indication: PRODUCT USED FOR UNKNOWN INDICATION
     Dosage: 40 MG, DAILY
  164. GEMFIBROZIL [Concomitant]
     Indication: PRODUCT USED FOR UNKNOWN INDICATION
     Dosage: 600 MG, BID
  165. LOPERAMIDE [Concomitant]
     Indication: PRODUCT USED FOR UNKNOWN INDICATION
     Dosage: 10 MG, TID
  166. SEROQUEL [Concomitant]
     Indication: PRODUCT USED FOR UNKNOWN INDICATION
     Dosage: 25 MG, PM
  167. SEROQUEL [Concomitant]
     Dosage: 50 MG, HS
  168. NICODERM [Concomitant]
     Indication: PRODUCT USED FOR UNKNOWN INDICATION
     Dosage: 21 MG, DAILY
  169. NICOTINE POLACRILEX [Concomitant]
     Indication: PRODUCT USED FOR UNKNOWN INDICATION
     Dosage: 4 MG, PRN
  170. NIASPAN [Concomitant]
     Indication: PRODUCT USED FOR UNKNOWN INDICATION
     Dosage: 1500 MG, DAILY
  171. NIASPAN [Concomitant]
     Dosage: 1000 MG, DAILY
  172. NIASPAN [Concomitant]
     Dosage: 500 MG, DAILY
  173. ASPIRIN [Concomitant]
     Indication: PRODUCT USED FOR UNKNOWN INDICATION
     Dosage: 325 MG, DAILY
  174. RISPERDAL [Concomitant]
     Indication: PRODUCT USED FOR UNKNOWN INDICATION
     Dosage: 1 MG, HS
  175. RISPERDAL [Concomitant]
     Dosage: 1 MG, TID PRN
  176. IBUPROFEN [Concomitant]
     Indication: PRODUCT USED FOR UNKNOWN INDICATION
     Dosage: 40 MG, TID
  177. NU-RANIT [Concomitant]
     Indication: PRODUCT USED FOR UNKNOWN INDICATION
     Dosage: 150 MG, UNK
     Dates: start: 20100324, end: 20100910
  178. NU-RANIT [Concomitant]
     Dosage: 150 MG, BID
  179. PMS-RANITIDINE [Concomitant]
     Indication: PRODUCT USED FOR UNKNOWN INDICATION
     Dosage: 150 MG, BID
  180. ZANTAC [Concomitant]
     Indication: PRODUCT USED FOR UNKNOWN INDICATION
     Dosage: 150 MG, BID
     Route: 048
  181. CREON 10 [Concomitant]
     Indication: PRODUCT USED FOR UNKNOWN INDICATION
     Dosage: UNK
     Dates: start: 20101202, end: 20101231
  182. CREON 10 [Concomitant]
     Dosage: 1 CAPSL, TID
  183. CREON 25000 [Concomitant]
     Indication: PRODUCT USED FOR UNKNOWN INDICATION
     Dosage: 1 CAPSL, TID
  184. FENOFIBRATE [Concomitant]
     Indication: PRODUCT USED FOR UNKNOWN INDICATION
     Dosage: 200 MG, DAILY
  185. DOMPERIDONE [Concomitant]
     Indication: PRODUCT USED FOR UNKNOWN INDICATION
     Dosage: 10 MG, AC + HS
  186. DOM-BACLOFEN [Concomitant]
     Indication: PRODUCT USED FOR UNKNOWN INDICATION
     Dosage: 20 MG, UNK
     Dates: start: 20070804, end: 20070806
  187. TYLENOL EXTRA STRENGTH [Concomitant]
     Indication: PRODUCT USED FOR UNKNOWN INDICATION
     Dosage: 1000 MG, Q6H PRN
     Route: 048
  188. PROCTOSEDYL                        /00095901/ [Concomitant]
     Indication: HAEMORRHOIDS
     Dosage: UNK, PRN
     Route: 054
  189. PROCTOSEDYL                        /00095901/ [Concomitant]
     Dosage: UNK SUPP., PRN
     Route: 054
  190. APO-FUROSEMIDE [Concomitant]
     Indication: PRODUCT USED FOR UNKNOWN INDICATION
     Dosage: 40 MG, BID
  191. DICETEL [Concomitant]
     Indication: PRODUCT USED FOR UNKNOWN INDICATION
  192. STEMETIL                           /00013301/ [Concomitant]
     Indication: PRODUCT USED FOR UNKNOWN INDICATION
     Dosage: 5 MG, UNK
  193. LOMOTIL [Concomitant]
     Indication: PRODUCT USED FOR UNKNOWN INDICATION

REACTIONS (69)
  - Accidental overdose [Unknown]
  - Depressed level of consciousness [Recovered/Resolved]
  - Metabolic encephalopathy [Unknown]
  - Respiratory depression [Unknown]
  - Prerenal failure [Unknown]
  - Drug dependence [Unknown]
  - Substance abuse [Unknown]
  - Drug withdrawal syndrome [Unknown]
  - Cellulitis [Unknown]
  - Lymphoedema [Unknown]
  - Abdominal pain [Unknown]
  - Off label use [Unknown]
  - Pain [Unknown]
  - Drug tolerance increased [Unknown]
  - Local swelling [Unknown]
  - Quality of life decreased [Unknown]
  - Stress [Unknown]
  - Dyskinesia [Unknown]
  - Hyperventilation [Unknown]
  - Headache [Unknown]
  - Diarrhoea [Unknown]
  - Feeling of body temperature change [Unknown]
  - Anxiety [Unknown]
  - Irritability [Unknown]
  - Agitation [Unknown]
  - Drug ineffective [Unknown]
  - Impaired work ability [Unknown]
  - Skin ulcer [Unknown]
  - Stasis dermatitis [Unknown]
  - Obesity [Unknown]
  - Fluid retention [Unknown]
  - Eczema [Unknown]
  - Hyperhidrosis [Unknown]
  - Malaise [Unknown]
  - Piloerection [Unknown]
  - Pruritus generalised [Unknown]
  - Inflammation [Unknown]
  - Vomiting [Unknown]
  - Urinary tract obstruction [Unknown]
  - Confusional state [Unknown]
  - Somnolence [Unknown]
  - Hiccups [Unknown]
  - Dyspnoea [Unknown]
  - Deep vein thrombosis [Unknown]
  - Pulmonary embolism [Unknown]
  - Cholecystitis [Unknown]
  - Azotaemia [Unknown]
  - Duodenitis [Unknown]
  - Jaundice [Unknown]
  - Hypertriglyceridaemia [Unknown]
  - Hypercholesterolaemia [Unknown]
  - Nausea [Unknown]
  - Orthopnoea [Unknown]
  - Hyperlipidaemia [Unknown]
  - Hepatic steatosis [Unknown]
  - Dyslipidaemia [Unknown]
  - Osteoarthritis [Unknown]
  - Chronic obstructive pulmonary disease [Unknown]
  - Pancreatic mass [Unknown]
  - Erosive duodenitis [Unknown]
  - Pancreatic cyst [Unknown]
  - Varicose vein [Unknown]
  - Liver function test abnormal [Unknown]
  - Hyperbilirubinaemia [Unknown]
  - Sleep apnoea syndrome [Unknown]
  - Venous insufficiency [Unknown]
  - Diabetes mellitus [Unknown]
  - Tobacco user [Unknown]
  - Tobacco abuse [Unknown]
